FAERS Safety Report 6470864-9 (Version None)
Quarter: 2009Q4

REPORT INFORMATION
  Report Type: 
  Country: None (occurrence: None)
  Receive Date: 20091203
  Receipt Date: 20090325
  Transmission Date: 20100525
  Serious: Yes (Other)
  Sender: FDA-Public Use
  Company Number: BE-ELI_LILLY_AND_COMPANY-BE200801003728

PATIENT
  Sex: Male

DRUGS (15)
  1. ALIMTA [Suspect]
     Indication: NON-SMALL CELL LUNG CANCER
     Dosage: UNK, UNKNOWN
     Route: 065
     Dates: start: 20060228, end: 20060401
  2. DEXAMETHASONE TAB [Concomitant]
     Indication: NON-SMALL CELL LUNG CANCER
     Dosage: UNK, UNKNOWN
     Route: 065
     Dates: start: 20060401
  3. XANTHIUM [Concomitant]
     Dosage: UNK, UNKNOWN
     Route: 065
  4. NOVONORM [Concomitant]
     Dosage: UNK, UNKNOWN
     Route: 065
  5. METFORMIN HCL [Concomitant]
     Dosage: UNK, UNKNOWN
     Route: 065
  6. DEANXIT [Concomitant]
     Dosage: UNK, UNKNOWN
     Route: 065
  7. LIPANTHYL [Concomitant]
     Dosage: UNK, UNKNOWN
     Route: 065
  8. FELODIPINE [Concomitant]
     Dosage: UNK, UNKNOWN
     Route: 065
  9. DEPAKENE [Concomitant]
     Dosage: UNK, UNKNOWN
     Route: 065
  10. LISINOPRIL [Concomitant]
     Dosage: UNK, UNKNOWN
     Route: 065
  11. ASAFLOW [Concomitant]
     Dosage: UNK, UNKNOWN
     Route: 065
  12. ZALDIAR [Concomitant]
     Dosage: UNK, UNKNOWN
     Route: 065
  13. PANTOZOL [Concomitant]
     Dosage: UNK, UNKNOWN
     Route: 065
  14. SPIRIVA [Concomitant]
     Dosage: UNK, UNKNOWN
     Route: 065
  15. SERETIDE [Concomitant]
     Dosage: UNK, UNKNOWN
     Route: 065

REACTIONS (1)
  - ACUTE GENERALISED EXANTHEMATOUS PUSTULOSIS [None]
